FAERS Safety Report 9460369 (Version 1)
Quarter: 2013Q3

REPORT INFORMATION
  Report Type: Spontaneous
  Country: FR (occurrence: FR)
  Receive Date: 20130815
  Receipt Date: 20130815
  Transmission Date: 20140515
  Serious: Yes (Death, Other)
  Sender: FDA-Public Use
  Company Number: FR-TEVA-423690ISR

PATIENT
  Age: 69 Year
  Sex: Male

DRUGS (11)
  1. ETOPOSIDE TEVA 200MG/10ML [Suspect]
     Dosage: 200 MILLIGRAM DAILY;
     Route: 042
     Dates: start: 20130523, end: 20130525
  2. BACTRIM [Suspect]
     Route: 048
     Dates: start: 20130527, end: 20130529
  3. PIPERACILLIN TAZOBACTAM [Suspect]
     Route: 042
     Dates: start: 20130527, end: 20130531
  4. ACTRAPID [Concomitant]
     Route: 042
  5. METHYLPREDNISOLONE [Concomitant]
     Dosage: 160 MILLIGRAM DAILY;
  6. ARANESP [Concomitant]
     Dosage: 21.4286 MICROGRAM DAILY;
  7. CALCIUM D3 500/400 [Concomitant]
     Dosage: 2 DOSAGE FORMS DAILY; MORNING
  8. TRAVATAN 40 [Concomitant]
     Dosage: 1 DOSAGE FORMS DAILY; EVENING
  9. EUPANTOL 40 [Concomitant]
     Dosage: 1 DOSAGE FORMS DAILY; EVENING
  10. LASILIX 20 [Concomitant]
     Dosage: 1 DOSAGE FORMS DAILY; MORNING
  11. SPECIAFOLDINE [Concomitant]
     Dosage: 2 DOSAGE FORMS DAILY; MORNING/EVENING

REACTIONS (5)
  - Agranulocytosis [Recovered/Resolved]
  - Death [Fatal]
  - Renal failure [Unknown]
  - Pneumocystis jirovecii pneumonia [Unknown]
  - Pyrexia [Unknown]
